FAERS Safety Report 10866422 (Version 1)
Quarter: 2015Q1

REPORT INFORMATION
  Report Type: Spontaneous
  Country: US (occurrence: None)
  Receive Date: 20150219
  Receipt Date: 20150219
  Transmission Date: 20150721
  Serious: No
  Sender: FDA-Public Use
  Company Number: None

PATIENT
  Age: 34 Year
  Sex: Female
  Weight: 106.14 kg

DRUGS (3)
  1. ESTRADIOL. [Suspect]
     Active Substance: ESTRADIOL
     Indication: ARTIFICIAL MENOPAUSE
     Route: 062
     Dates: start: 2013, end: 2014
  2. ESTRADIOL. [Concomitant]
     Active Substance: ESTRADIOL
  3. CLIMARA [Concomitant]
     Active Substance: ESTRADIOL

REACTIONS (2)
  - Application site erythema [None]
  - Application site pruritus [None]

NARRATIVE: CASE EVENT DATE: 20140418
